FAERS Safety Report 8077570-8 (Version None)
Quarter: 2012Q1

REPORT INFORMATION
  Report Type: 
  Country: None (occurrence: None)
  Receive Date: 20120127
  Receipt Date: 20120123
  Transmission Date: 20120608
  Serious: No
  Sender: FDA-Public Use
  Company Number: US-B.I. PHARMACEUTICALS,INC./RIDGEFIELD-2012-BP-01356BP

PATIENT
  Sex: Female

DRUGS (5)
  1. PRADAXA [Suspect]
     Indication: ATRIAL FIBRILLATION
     Dosage: 300 MG
     Route: 048
     Dates: start: 20120123, end: 20120123
  2. ATENOLOL [Concomitant]
     Indication: HYPERTENSION
     Dates: start: 20110101
  3. LEVOTHYROXINE SODIUM [Concomitant]
     Indication: HYPOTHYROIDISM
     Dates: start: 20090101
  4. DIGOXIN [Concomitant]
     Indication: ATRIAL FIBRILLATION
     Dates: start: 20111225
  5. FUROSEMIDE [Concomitant]
     Indication: OEDEMA PERIPHERAL
     Dates: start: 20111225

REACTIONS (2)
  - DIZZINESS [None]
  - BLOOD PRESSURE INCREASED [None]
